FAERS Safety Report 22284063 (Version 1)
Quarter: 2023Q2

REPORT INFORMATION
  Report Type: Spontaneous
  Country: US (occurrence: None)
  Receive Date: 20230503
  Receipt Date: 20230503
  Transmission Date: 20230722
  Serious: Yes (Hospitalization)
  Sender: FDA-Public Use
  Company Number: None

PATIENT
  Sex: Male

DRUGS (7)
  1. CREON [Suspect]
     Active Substance: PANCRELIPASE AMYLASE\PANCRELIPASE LIPASE\PANCRELIPASE PROTEASE
     Indication: Cystic fibrosis
     Dosage: OTHER STRENGTH : 6000 UNIT;?OTHER QUANTITY : 600-19000 UNIT;?FREQUENCY : AS DIRECTED;?TAKE 4 CAPSULE
     Route: 048
     Dates: start: 20181005
  2. ALBUTEROL INH SOL [Concomitant]
  3. PROAIR GEQ [Concomitant]
  4. DEKAS PLUS CHEWABLES [Concomitant]
  5. LANSOPRAZOLE [Concomitant]
     Active Substance: LANSOPRAZOLE
  6. PULMOZYME [Concomitant]
  7. SOD CHL 3% [Concomitant]

REACTIONS (1)
  - Constipation [None]
